FAERS Safety Report 8456109-9 (Version None)
Quarter: 2012Q2

REPORT INFORMATION
  Report Type: 
  Country: None (occurrence: None)
  Receive Date: 20120621
  Receipt Date: 20120607
  Transmission Date: 20120825
  Serious: Yes (Death)
  Sender: FDA-Public Use
  Company Number: US-ROCHE-1049272

PATIENT
  Sex: Male
  Weight: 68.1 kg

DRUGS (5)
  1. XELODA [Suspect]
     Indication: PRODUCT USED FOR UNKNOWN INDICATION
     Route: 048
     Dates: start: 20110217, end: 20120219
  2. FLUOROURACIL [Concomitant]
  3. MS CONTIN [Concomitant]
  4. ZOSYN [Concomitant]
  5. CELEXA [Concomitant]

REACTIONS (1)
  - DISEASE PROGRESSION [None]
